FAERS Safety Report 24323169 (Version 2)
Quarter: 2024Q3

REPORT INFORMATION
  Report Type: Report from Study
  Country: US (occurrence: US)
  Receive Date: 20240916
  Receipt Date: 20240920
  Transmission Date: 20241016
  Serious: Yes (Other)
  Sender: MYLAN
  Company Number: US-MYLANLABS-2024M1083759

PATIENT
  Sex: Female

DRUGS (1)
  1. GLATIRAMER ACETATE [Suspect]
     Active Substance: GLATIRAMER ACETATE
     Indication: Relapsing-remitting multiple sclerosis
     Dosage: 40 MILLIGRAM
     Route: 058

REACTIONS (8)
  - Multiple sclerosis relapse [Recovering/Resolving]
  - Stress [Unknown]
  - Abdominal pain upper [Recovered/Resolved]
  - Bursitis [Unknown]
  - Chest pain [Recovered/Resolved]
  - Epicondylitis [Unknown]
  - Product dose omission issue [Unknown]
  - Hypersomnia [Unknown]
